FAERS Safety Report 5252996-6 (Version None)
Quarter: 2007Q1

REPORT INFORMATION
  Report Type: 
  Country: None (occurrence: None)
  Receive Date: 20070301
  Receipt Date: 20070216
  Transmission Date: 20070707
  Serious: Yes (Hospitalization)
  Sender: FDA-Public Use
  Company Number: HQWYE368105DEC06

PATIENT
  Sex: Female
  Weight: 57 kg

DRUGS (12)
  1. ENBREL [Suspect]
     Indication: RHEUMATOID ARTHRITIS
     Route: 058
     Dates: start: 20060625, end: 20061013
  2. RHEUMATREX [Suspect]
     Indication: RHEUMATOID ARTHRITIS
     Route: 048
     Dates: start: 20060616, end: 20060810
  3. RHEUMATREX [Suspect]
     Route: 048
     Dates: start: 20060811, end: 20061020
  4. PREDONINE [Suspect]
     Indication: RHEUMATOID ARTHRITIS
     Route: 048
  5. PREDONINE [Suspect]
     Route: 048
     Dates: start: 20041227
  6. PREDONINE [Suspect]
     Route: 048
     Dates: start: 20060801
  7. MOBIC [Concomitant]
     Indication: RHEUMATOID ARTHRITIS
     Route: 048
     Dates: start: 20060616
  8. NORVASC [Concomitant]
     Indication: HYPERTENSION
     Route: 048
  9. TAKEPRON [Concomitant]
     Route: 048
     Dates: start: 20060616
  10. BENET [Concomitant]
     Indication: OSTEOPOROSIS
     Route: 048
     Dates: start: 20060616
  11. FOLIAMIN [Concomitant]
     Route: 048
     Dates: start: 20060616
  12. VOLTAREN [Concomitant]
     Indication: RHEUMATOID ARTHRITIS
     Route: 054
     Dates: start: 20060616

REACTIONS (1)
  - PNEUMOCYSTIS JIROVECI PNEUMONIA [None]
